FAERS Safety Report 25226219 (Version 1)
Quarter: 2025Q2

REPORT INFORMATION
  Report Type: Spontaneous
  Country: US (occurrence: US)
  Receive Date: 20250422
  Receipt Date: 20250422
  Transmission Date: 20250716
  Serious: Yes (Other)
  Sender: SANOFI AVENTIS
  Company Number: US-SA-2025SA115732

PATIENT
  Age: 59 Year
  Sex: Female
  Weight: 119.77 kg

DRUGS (1)
  1. DUPIXENT [Suspect]
     Active Substance: DUPILUMAB
     Indication: Asthma
     Dosage: 300 MG, QOW
     Route: 058
     Dates: end: 202504

REACTIONS (6)
  - Loss of consciousness [Unknown]
  - Skin swelling [Unknown]
  - Blood pressure decreased [Unknown]
  - Sleep disorder due to a general medical condition [Unknown]
  - Impaired work ability [Unknown]
  - Dizziness [Unknown]

NARRATIVE: CASE EVENT DATE: 20250401
